FAERS Safety Report 6211875-8 (Version None)
Quarter: 2009Q2

REPORT INFORMATION
  Report Type: 
  Country: None (occurrence: None)
  Receive Date: 20090529
  Receipt Date: 20090515
  Transmission Date: 20091009
  Serious: Yes (Hospitalization)
  Sender: FDA-Public Use
  Company Number: 2009US001563

PATIENT
  Age: 28 Year
  Sex: Male

DRUGS (20)
  1. ALEFACEPT(ALEFACEPT) INJECTION [Suspect]
     Indication: RENAL TRANSPLANT
     Dosage: 7.5 MCG, UID/QD, IV NOS
     Route: 042
     Dates: start: 20090426, end: 20090426
  2. PROGRAF [Suspect]
     Indication: RENAL TRANSPLANT
     Dosage: D, ORAL
     Route: 048
     Dates: start: 20090426
  3. CELLCEPT [Concomitant]
  4. PREDNISOLONE [Concomitant]
  5. CARVEDILOL [Concomitant]
  6. LASIX [Concomitant]
  7. ACYCLOVIR [Concomitant]
  8. BACTRIM [Concomitant]
  9. COLACE (DOCUSATE SODIUM) [Concomitant]
  10. NEXIUM (ESOMEPRAZOLE SODIUM) [Concomitant]
  11. SIMVASTATIN [Concomitant]
  12. ZETIA [Concomitant]
  13. ASPIRIN [Concomitant]
  14. TRILEPTAL [Concomitant]
  15. ZYRTEC [Concomitant]
  16. LYRICA [Concomitant]
  17. FERROUS SULFATE TAB [Concomitant]
  18. FOLIC ACID [Concomitant]
  19. CYMBALTA [Concomitant]
  20. PERCOCET [Concomitant]

REACTIONS (8)
  - ANAEMIA [None]
  - ANXIETY [None]
  - BLOOD CREATININE INCREASED [None]
  - BLOOD UREA INCREASED [None]
  - DYSPNOEA [None]
  - FOCAL SEGMENTAL GLOMERULOSCLEROSIS [None]
  - KIDNEY TRANSPLANT REJECTION [None]
  - PAIN [None]
